FAERS Safety Report 7281221-X (Version None)
Quarter: 2011Q1

REPORT INFORMATION
  Report Type: 
  Country: None (occurrence: None)
  Receive Date: 20110208
  Receipt Date: 20110131
  Transmission Date: 20110831
  Serious: Yes (Death)
  Sender: FDA-Public Use
  Company Number: CHPA2011US02048

PATIENT
  Age: 42 Year
  Sex: Female

DRUGS (1)
  1. ACETAMINOPHEN (PARACETAMOL),DIPHENHYDRAMINE HYDROCHLORIDE [Suspect]
     Dosage: UNK, UNK
     Route: 048

REACTIONS (25)
  - MULTIPLE DRUG OVERDOSE [None]
  - UNRESPONSIVE TO STIMULI [None]
  - ENDOTRACHEAL INTUBATION [None]
  - HYPOTHERMIA [None]
  - HYPOTENSION [None]
  - INTERNATIONAL NORMALISED RATIO INCREASED [None]
  - BODY TEMPERATURE INCREASED [None]
  - ACIDOSIS [None]
  - COMPLETED SUICIDE [None]
  - CORNEAL REFLEX DECREASED [None]
  - HEPATIC FUNCTION ABNORMAL [None]
  - ALANINE AMINOTRANSFERASE INCREASED [None]
  - ELECTROCARDIOGRAM QT PROLONGED [None]
  - EXTENSOR PLANTAR RESPONSE [None]
  - PLEURAL EFFUSION [None]
  - BLOOD CREATININE INCREASED [None]
  - VOMITING [None]
  - PULMONARY CONGESTION [None]
  - HEPATIC NECROSIS [None]
  - BLOOD GLUCOSE INCREASED [None]
  - HEART RATE INCREASED [None]
  - POSTURING [None]
  - MYDRIASIS [None]
  - BODY TEMPERATURE DECREASED [None]
  - ASPARTATE AMINOTRANSFERASE INCREASED [None]
